FAERS Safety Report 6189303-0 (Version None)
Quarter: 2009Q2

REPORT INFORMATION
  Report Type: 
  Country: None (occurrence: None)
  Receive Date: 20090512
  Receipt Date: 20090422
  Transmission Date: 20091009
  Serious: Yes (Death)
  Sender: FDA-Public Use
  Company Number: ADE# 09-128DPR

PATIENT
  Age: 64 Year
  Sex: Female

DRUGS (11)
  1. DIGOXIN [Suspect]
     Dosage: ONCE A DAY/FEW YEARS AGO
  2. NEXIUM [Concomitant]
  3. COUMADIN [Concomitant]
  4. NOVOLOG [Concomitant]
  5. SYNTHROID [Concomitant]
  6. ASPIRIN [Concomitant]
  7. COREG [Concomitant]
  8. COZAAR [Concomitant]
  9. LASIX [Concomitant]
  10. K-DUR [Concomitant]
  11. PROSOURCE NUTRITIONAL DRINK [Concomitant]

REACTIONS (8)
  - BLOOD GLUCOSE INCREASED [None]
  - BLOOD PRESSURE INCREASED [None]
  - CARDIAC FAILURE CONGESTIVE [None]
  - HEART RATE INCREASED [None]
  - HEART RATE IRREGULAR [None]
  - RENAL DISORDER [None]
  - SPEECH DISORDER [None]
  - UNEVALUABLE EVENT [None]
